FAERS Safety Report 21840969 (Version 1)
Quarter: 2023Q1

REPORT INFORMATION
  Report Type: Report from Study
  Country: US (occurrence: US)
  Receive Date: 20230110
  Receipt Date: 20230110
  Transmission Date: 20230418
  Serious: Yes (Hospitalization)
  Sender: FDA-Public Use
  Company Number: US-ABBVIE-4261294

PATIENT
  Age: 73 Year
  Sex: Female

DRUGS (6)
  1. HUMIRA [Suspect]
     Active Substance: ADALIMUMAB
     Indication: Psoriasis
     Dosage: STRENGTH: 40 MG
     Route: 058
  2. ASPIRIN POW [Concomitant]
     Indication: Product used for unknown indication
  3. BENAZEPRIL H [Concomitant]
     Indication: Product used for unknown indication
     Dosage: TAB 40MG
  4. ATORVASTATIN [Concomitant]
     Active Substance: ATORVASTATIN
     Indication: Product used for unknown indication
     Dosage: TAB 40MG
  5. AMLODIPINE B [Concomitant]
     Indication: Product used for unknown indication
     Dosage: TAB 5MG
  6. VENLAFAXINE CP2 [Concomitant]
     Indication: Product used for unknown indication
     Dosage: 150MG

REACTIONS (1)
  - Cerebrovascular accident [Not Recovered/Not Resolved]

NARRATIVE: CASE EVENT DATE: 20221101
